FAERS Safety Report 16820359 (Version 1)
Quarter: 2019Q3

REPORT INFORMATION
  Report Type: Other
  Country: RO (occurrence: RO)
  Receive Date: 20190918
  Receipt Date: 20190918
  Transmission Date: 20191005
  Serious: Yes (Death, Other)
  Sender: FDA-Public Use
  Company Number: RO-CELLTRION INC.-2019RO024907

PATIENT

DRUGS (13)
  1. ARNETINE [Concomitant]
     Dosage: UNK
     Route: 065
     Dates: start: 20190727
  2. METHOTREXATE. [Suspect]
     Active Substance: METHOTREXATE
     Route: 065
  3. MYOZYME [Suspect]
     Active Substance: ALGLUCOSIDASE ALFA
     Dosage: 3 DF
     Route: 065
     Dates: start: 20190727
  4. AERIUS [EBASTINE] [Concomitant]
     Active Substance: EBASTINE
     Dosage: UNK
     Route: 065
     Dates: start: 20190727
  5. MYOZYME [Suspect]
     Active Substance: ALGLUCOSIDASE ALFA
     Dosage: 20 MG/KG
     Route: 041
     Dates: start: 20190807
  6. FUROSEMIDE. [Concomitant]
     Active Substance: FUROSEMIDE
     Dosage: UNK
     Route: 065
     Dates: start: 20190727
  7. SPIRONOLACTONE. [Concomitant]
     Active Substance: SPIRONOLACTONE
     Dosage: UNK
     Route: 065
     Dates: start: 20190727
  8. BORTEZOMIB. [Concomitant]
     Active Substance: BORTEZOMIB
  9. MYOZYME [Suspect]
     Active Substance: ALGLUCOSIDASE ALFA
     Indication: GLYCOGEN STORAGE DISEASE TYPE II
     Dosage: 25 MG/KG
     Route: 041
     Dates: start: 2019
  10. MYOZYME [Suspect]
     Active Substance: ALGLUCOSIDASE ALFA
     Dosage: 20 MG/KG
     Route: 042
     Dates: start: 201809, end: 20190807
  11. CAPTOPRIL. [Concomitant]
     Active Substance: CAPTOPRIL
     Dosage: UNK
     Route: 065
     Dates: start: 20190727
  12. RITUXIMAB (UNKNOWN) [Suspect]
     Active Substance: RITUXIMAB
     Route: 065
  13. DEXAMETHASONE. [Concomitant]
     Active Substance: DEXAMETHASONE
     Dosage: UNK
     Route: 065
     Dates: start: 20190727

REACTIONS (19)
  - Metabolic acidosis [Fatal]
  - Blood pressure increased [Fatal]
  - Hypotonia [Fatal]
  - Respiratory acidosis [Fatal]
  - Cyanosis [Fatal]
  - Hyperthermia malignant [Fatal]
  - Pyrexia [Fatal]
  - Cardiac murmur [Fatal]
  - Disease progression [Fatal]
  - Hypogammaglobulinaemia [Unknown]
  - Hypopnoea [Fatal]
  - Blood immunoglobulin A decreased [Unknown]
  - Chronic respiratory failure [Fatal]
  - Product use issue [Unknown]
  - Cardio-respiratory arrest [Fatal]
  - Peripheral coldness [Fatal]
  - Heart rate increased [Fatal]
  - Respiratory rate increased [Fatal]
  - Oedema peripheral [Unknown]

NARRATIVE: CASE EVENT DATE: 2019
